APPROVED DRUG PRODUCT: OLANZAPINE
Active Ingredient: OLANZAPINE
Strength: 2.5MG
Dosage Form/Route: TABLET;ORAL
Application: A210022 | Product #001 | TE Code: AB
Applicant: CADILA PHARMACEUTICALS LTD
Approved: Feb 24, 2023 | RLD: No | RS: No | Type: RX